FAERS Safety Report 7138009-X (Version None)
Quarter: 2010Q4

REPORT INFORMATION
  Report Type: 
  Country: None (occurrence: None)
  Receive Date: 20101206
  Receipt Date: 20101124
  Transmission Date: 20110411
  Serious: Yes (Other)
  Sender: FDA-Public Use
  Company Number: US-SANOFI-AVENTIS-2010SA072629

PATIENT
  Age: 61 Year
  Sex: Female

DRUGS (2)
  1. LANTUS [Suspect]
     Indication: TYPE 2 DIABETES MELLITUS
     Dosage: 32 UNITS IN THE MORNING, 32 UNITS IN THE EVENING
     Route: 058
     Dates: start: 19980101
  2. SOLOSTAR [Suspect]
     Indication: TYPE 2 DIABETES MELLITUS
     Dates: start: 19980101

REACTIONS (5)
  - CATARACT [None]
  - DEVICE MALFUNCTION [None]
  - OSTEOARTHRITIS [None]
  - PAIN [None]
  - SHOULDER ARTHROPLASTY [None]
